FAERS Safety Report 13905801 (Version 2)
Quarter: 2017Q4

REPORT INFORMATION
  Report Type: Spontaneous
  Country: US (occurrence: US)
  Receive Date: 20170825
  Receipt Date: 20171017
  Transmission Date: 20180320
  Serious: No
  Sender: FDA-Public Use
  Company Number: US-GLAXOSMITHKLINE-US2017130637

PATIENT
  Sex: Male
  Weight: 165.8 kg

DRUGS (1)
  1. TANZEUM [Suspect]
     Active Substance: ALBIGLUTIDE
     Indication: TYPE 2 DIABETES MELLITUS
     Dosage: 30 MG, WE
     Route: 058
     Dates: start: 20170601, end: 20171002

REACTIONS (5)
  - Device leakage [Unknown]
  - Wrong technique in device usage process [Unknown]
  - Rash macular [Unknown]
  - Injection site rash [Unknown]
  - Injection site erythema [Unknown]
